FAERS Safety Report 20769512 (Version 1)
Quarter: 2022Q2

REPORT INFORMATION
  Report Type: Other
  Country: None (occurrence: ES)
  Receive Date: 20220429
  Receipt Date: 20220429
  Transmission Date: 20220721
  Serious: Yes (Other)
  Sender: FDA-Public Use
  Company Number: ES-B.Braun Medical Inc.-2128293

PATIENT
  Age: 38 Year
  Sex: Female

DRUGS (9)
  1. CEFAZOLIN [Suspect]
     Active Substance: CEFAZOLIN
  2. AMOXICILLIN [Suspect]
     Active Substance: AMOXICILLIN
  3. DEXKETOPROFEN [Suspect]
     Active Substance: DEXKETOPROFEN
  4. INDOMETHACIN [Suspect]
     Active Substance: INDOMETHACIN
  5. IBUPROFEN [Suspect]
     Active Substance: IBUPROFEN
  6. LIDOCAINE [Suspect]
     Active Substance: LIDOCAINE
  7. MEPIVACAINE [Suspect]
     Active Substance: MEPIVACAINE HYDROCHLORIDE
  8. METAMIZOLE [Suspect]
     Active Substance: METAMIZOLE
  9. ACETAMINOPHEN [Suspect]
     Active Substance: ACETAMINOPHEN

REACTIONS (1)
  - Hepatocellular injury [Unknown]
